FAERS Safety Report 4917884-0 (Version None)
Quarter: 2006Q1

REPORT INFORMATION
  Report Type: 
  Country: None (occurrence: None)
  Receive Date: 20060221
  Receipt Date: 20051221
  Transmission Date: 20060701
  Serious: Yes (Hospitalization)
  Sender: FDA-Public Use
  Company Number: DE-AMGEN-UK162465

PATIENT
  Age: 65 Year
  Sex: Male

DRUGS (12)
  1. KINERET [Suspect]
     Indication: RHEUMATOID ARTHRITIS
     Route: 058
     Dates: start: 20041001, end: 20050501
  2. METHOTREXATE [Suspect]
     Route: 065
     Dates: start: 20031001, end: 20050501
  3. LEFLUNOMIDE [Concomitant]
     Route: 065
     Dates: start: 20030101
  4. PREDNISOLONE [Concomitant]
     Route: 065
     Dates: start: 20050401
  5. TRAMADOL [Concomitant]
     Route: 065
     Dates: start: 20000101
  6. PIROXICAM [Concomitant]
     Route: 065
     Dates: start: 20040201
  7. NOVALGIN [Concomitant]
     Route: 065
     Dates: start: 20040901
  8. PANTOPRAZOLE [Concomitant]
     Route: 065
     Dates: start: 20020601
  9. DELIX [Concomitant]
     Route: 065
     Dates: start: 20041101
  10. NOVORAPID [Concomitant]
     Route: 065
  11. CALCIUM CARBONATE/COLECALCIFEROL [Concomitant]
     Route: 065
     Dates: start: 20040901
  12. INSULIN HUMAN [Concomitant]
     Route: 065

REACTIONS (2)
  - GANGRENE [None]
  - IMPAIRED HEALING [None]
